FAERS Safety Report 16303795 (Version 1)
Quarter: 2019Q2

REPORT INFORMATION
  Report Type: Spontaneous
  Country: US (occurrence: US)
  Receive Date: 20190405
  Receipt Date: 20190405
  Transmission Date: 20190711
  Serious: Yes (Disabling)
  Sender: FDA-Public Use
  Company Number: None

PATIENT
  Age: 88 Year
  Sex: Female
  Weight: 86.18 kg

DRUGS (3)
  1. VIT D 3 [Concomitant]
  2. THERA CRAN [Concomitant]
  3. MYRBETRIQ [Suspect]
     Active Substance: MIRABEGRON
     Indication: POLLAKIURIA
     Dosage: ?          QUANTITY:1 PILL;OTHER FREQUENCY:AFTER DINNER;?
     Route: 048
     Dates: start: 20190214, end: 20190217

REACTIONS (8)
  - Headache [None]
  - Pruritus [None]
  - Urinary tract infection [None]
  - Dizziness [None]
  - Nasopharyngitis [None]
  - Abdominal distension [None]
  - Fatigue [None]
  - Diarrhoea [None]

NARRATIVE: CASE EVENT DATE: 20190316
